FAERS Safety Report 6856278-8 (Version None)
Quarter: 2010Q3

REPORT INFORMATION
  Report Type: 
  Country: None (occurrence: None)
  Receive Date: 20100719
  Receipt Date: 20100706
  Transmission Date: 20110219
  Serious: Yes (Other)
  Sender: FDA-Public Use
  Company Number: PHEH2007US04226

PATIENT
  Sex: Female

DRUGS (3)
  1. AREDIA [Suspect]
     Indication: BREAST CANCER
  2. ZOMETA [Suspect]
     Indication: BREAST CANCER
  3. CLARITIN [Concomitant]

REACTIONS (23)
  - ANXIETY [None]
  - ARTHRALGIA [None]
  - ATROPHIC VULVOVAGINITIS [None]
  - BLOOD URINE PRESENT [None]
  - BONE DISORDER [None]
  - DECREASED INTEREST [None]
  - DEFORMITY [None]
  - EMOTIONAL DISTRESS [None]
  - HYPOPHAGIA [None]
  - INFECTION [None]
  - JAW OPERATION [None]
  - METASTASES TO HEART [None]
  - METASTASES TO PLEURA [None]
  - METASTASES TO SPINE [None]
  - MITRAL VALVE INCOMPETENCE [None]
  - OSTEITIS [None]
  - OSTEOMYELITIS [None]
  - OSTEONECROSIS OF JAW [None]
  - PAIN [None]
  - PERICARDIAL EFFUSION [None]
  - PERIODONTAL OPERATION [None]
  - PLEURAL EFFUSION [None]
  - TRICUSPID VALVE INCOMPETENCE [None]
